FAERS Safety Report 12838676 (Version 1)
Quarter: 2016Q4

REPORT INFORMATION
  Report Type: Spontaneous
  Country: JP (occurrence: JP)
  Receive Date: 20161012
  Receipt Date: 20161012
  Transmission Date: 20170207
  Serious: Yes (Life-Threatening, Hospitalization)
  Sender: FDA-Public Use
  Company Number: JP-SCIEGEN PHARMACEUTICALS INC-2016SCILIT00476

PATIENT
  Age: 79 Year
  Sex: Male

DRUGS (2)
  1. ASPIRIN. [Suspect]
     Active Substance: ASPIRIN
     Indication: MYOCARDIAL INFARCTION
     Dosage: 100 MG, UNK
     Route: 065
  2. CLOPIDOGREL [Suspect]
     Active Substance: CLOPIDOGREL BISULFATE
     Indication: MYOCARDIAL INFARCTION
     Dosage: 75 MG, UNK
     Route: 065

REACTIONS (9)
  - Tongue injury [Unknown]
  - Fall [Unknown]
  - Laceration [Unknown]
  - Moaning [Unknown]
  - Jaw fracture [Unknown]
  - Swollen tongue [Recovering/Resolving]
  - Mouth haemorrhage [Unknown]
  - Oropharyngeal swelling [Recovered/Resolved]
  - Upper airway obstruction [Unknown]
